FAERS Safety Report 8090096-0 (Version None)
Quarter: 2012Q1

REPORT INFORMATION
  Report Type: 
  Country: None (occurrence: None)
  Receive Date: 20120129
  Receipt Date: 20111028
  Transmission Date: 20120608
  Serious: No
  Sender: FDA-Public Use
  Company Number: US-ABBOTT-11P-163-0869842-00

PATIENT
  Age: 48 Year
  Sex: Male

DRUGS (18)
  1. HUMIRA [Suspect]
     Indication: PSORIATIC ARTHROPATHY
     Dates: start: 20100901
  2. OMEPRAZOLE [Concomitant]
     Indication: ULCER
  3. MULTI-VITAMIN [Concomitant]
     Indication: PRODUCT USED FOR UNKNOWN INDICATION
  4. ASPIRIN [Concomitant]
     Indication: PYREXIA
  5. ZYRTEC [Concomitant]
     Indication: PRODUCT USED FOR UNKNOWN INDICATION
  6. CLOBETASOL PROPIONATE [Concomitant]
     Indication: PRODUCT USED FOR UNKNOWN INDICATION
     Dosage: AFFECTED AREA
  7. METHOTREXATE [Concomitant]
     Indication: PRODUCT USED FOR UNKNOWN INDICATION
  8. FOLIC ACID [Concomitant]
     Indication: PRODUCT USED FOR UNKNOWN INDICATION
  9. BETADINE [Concomitant]
     Indication: PSORIASIS
     Dosage: TO BODY
  10. FLUOCINOLONE ACETONIDE [Concomitant]
     Indication: PSORIASIS
     Dosage: APPLY TO AFFECTED AREA
  11. HYDROCORTISONE [Concomitant]
     Indication: PSORIASIS
     Dosage: AFFECTED AREA ON FACE
  12. ASPIRIN [Concomitant]
     Indication: PROPHYLAXIS
  13. GUAIFENESIN [Concomitant]
     Indication: COUGH
  14. MOTRIN [Concomitant]
     Indication: PRODUCT USED FOR UNKNOWN INDICATION
  15. KETOCONAZOLE [Concomitant]
     Indication: PSORIASIS
     Dosage: APPLY TO GROIN AREA
  16. TRIMANCINOLONE ACETEONIDE [Concomitant]
     Indication: PSORIASIS
     Dosage: TO AFFECTED AREA AT BEDTIME
  17. RISPERDAL [Concomitant]
     Indication: SLEEP DISORDER
  18. FLUOCINOLONE ACETATONIDE [Concomitant]
     Indication: PSORIASIS
     Dosage: ON BODY EXCEPT GROIN AREA AT BEDTIME

REACTIONS (7)
  - HYPERHIDROSIS [None]
  - CONTUSION [None]
  - MYALGIA [None]
  - PYREXIA [None]
  - VISUAL IMPAIRMENT [None]
  - LETHARGY [None]
  - CHROMATURIA [None]
